FAERS Safety Report 25716422 (Version 2)
Quarter: 2025Q4

REPORT INFORMATION
  Report Type: Spontaneous
  Country: JP (occurrence: JP)
  Receive Date: 20250822
  Receipt Date: 20251119
  Transmission Date: 20260117
  Serious: Yes (Death, Hospitalization, Other)
  Sender: BRISTOL-MYERS SQUIBB COMPANY
  Company Number: JP-ONO-2025JP014804

PATIENT

DRUGS (3)
  1. OPDIVO [Suspect]
     Active Substance: NIVOLUMAB
     Indication: Gastric cancer
     Dosage: UNK
     Route: 042
  2. OXALIPLATIN [Suspect]
     Active Substance: OXALIPLATIN
     Indication: Gastric cancer
     Dosage: UNK
     Route: 041
  3. GIMERACIL\OTERACIL\TEGAFUR [Suspect]
     Active Substance: GIMERACIL\OTERACIL POTASSIUM\TEGAFUR
     Indication: Gastric cancer
     Dosage: UNK
     Route: 048

REACTIONS (3)
  - Pulmonary embolism [Fatal]
  - Platelet count decreased [Unknown]
  - Condition aggravated [Unknown]
